FAERS Safety Report 23858632 (Version 1)
Quarter: 2024Q2

REPORT INFORMATION
  Report Type: Spontaneous
  Country: US (occurrence: None)
  Receive Date: 20240514
  Receipt Date: 20240514
  Transmission Date: 20240715
  Serious: Yes (Death)
  Sender: FDA-Public Use
  Company Number: None

PATIENT
  Age: 77 Year
  Sex: Male

DRUGS (2)
  1. TOLVAPTAN [Suspect]
     Active Substance: TOLVAPTAN
  2. SAMSCA [Concomitant]
     Active Substance: TOLVAPTAN

REACTIONS (1)
  - Death [None]

NARRATIVE: CASE EVENT DATE: 20240508
